FAERS Safety Report 23702203 (Version 1)
Quarter: 2024Q2

REPORT INFORMATION
  Report Type: Spontaneous
  Country: DE (occurrence: DE)
  Receive Date: 20240403
  Receipt Date: 20240403
  Transmission Date: 20240715
  Serious: Yes (Hospitalization)
  Sender: FDA-Public Use
  Company Number: DE-ABBVIE-5694472

PATIENT
  Age: 62 Year

DRUGS (9)
  1. ADALIMUMAB [Suspect]
     Active Substance: ADALIMUMAB\ISOPROPYL ALCOHOL
     Indication: Axial spondyloarthritis
     Dosage: UNK
     Route: 058
     Dates: start: 201703, end: 201706
  2. CIMZIA [Concomitant]
     Active Substance: CERTOLIZUMAB PEGOL
     Indication: Axial spondyloarthritis
     Dosage: UNK
     Route: 065
     Dates: start: 201708
  3. COSENTYX [Concomitant]
     Active Substance: SECUKINUMAB
     Indication: Axial spondyloarthritis
     Dosage: UNK
     Route: 065
     Dates: start: 201706, end: 201708
  4. METHOTREXATE SODIUM [Concomitant]
     Active Substance: METHOTREXATE SODIUM
     Indication: Axial spondyloarthritis
     Dosage: 15.000DF
     Route: 065
     Dates: start: 201708
  5. PREDNISOLONE [Concomitant]
     Active Substance: PREDNISOLONE
     Indication: Arthropathy
     Dosage: 2017 LAST ADMIN DATE
     Route: 065
     Dates: start: 201706
  6. PREDNISOLONE [Concomitant]
     Active Substance: PREDNISOLONE
     Dosage: 2017 LAST ADMIN DATE
     Route: 065
     Dates: start: 201704
  7. PREDNISOLONE [Concomitant]
     Active Substance: PREDNISOLONE
     Indication: Polyarthritis
     Dosage: 60.000MG QD
     Route: 065
     Dates: start: 201610
  8. PREDNISOLONE [Concomitant]
     Active Substance: PREDNISOLONE
     Dosage: 60.000MG
     Route: 065
     Dates: start: 201708
  9. STELARA [Concomitant]
     Active Substance: USTEKINUMAB
     Indication: Axial spondyloarthritis
     Dosage: UNK
     Route: 065
     Dates: start: 201708

REACTIONS (6)
  - Terminal ileitis [Unknown]
  - Diarrhoea [Recovered/Resolved]
  - Abdominal pain [Recovered/Resolved]
  - Spinal disorder [Recovered/Resolved]
  - Axial spondyloarthritis [Recovered/Resolved]
  - Arthropathy [Recovered/Resolved]

NARRATIVE: CASE EVENT DATE: 20170401
